FAERS Safety Report 8241664-4 (Version None)
Quarter: 2012Q1

REPORT INFORMATION
  Report Type: 
  Country: None (occurrence: None)
  Receive Date: 20120328
  Receipt Date: 20120313
  Transmission Date: 20120608
  Serious: Yes (Other)
  Sender: FDA-Public Use
  Company Number: CHPA2012US005094

PATIENT
  Age: 28 Year
  Sex: Female

DRUGS (1)
  1. EXCEDRIN EXTRA STRENGTH TABLETS [Suspect]
     Indication: MIGRAINE
     Dosage: 2-4 DF, QOD
     Route: 048
     Dates: start: 20110301

REACTIONS (4)
  - BLINDNESS [None]
  - HEADACHE [None]
  - DIZZINESS [None]
  - NAUSEA [None]
